FAERS Safety Report 7335949-3 (Version None)
Quarter: 2011Q1

REPORT INFORMATION
  Report Type: 
  Country: None (occurrence: None)
  Receive Date: 20110307
  Receipt Date: 20110225
  Transmission Date: 20110831
  Serious: Yes (Other)
  Sender: FDA-Public Use
  Company Number: FR-PFIZER INC-FR-WYE-G05118709

PATIENT
  Age: 63 Year
  Sex: Male
  Weight: 75 kg

DRUGS (11)
  1. XANAX [Suspect]
     Dosage: 0.75 MG, TOTAL DAILY; REPORTEDLY INTERMITTENTY
     Route: 048
     Dates: start: 20090101, end: 20100301
  2. EFFEXOR XR [Suspect]
     Dosage: 37.5 MG, 1X/DAY
     Route: 048
     Dates: start: 20100101, end: 20100301
  3. EFFEXOR XR [Suspect]
     Dosage: 37.5 MG, 2X/DAY
     Route: 048
     Dates: start: 20100301
  4. DOXAZOSIN MESILATE [Concomitant]
     Route: 048
  5. EFFEXOR XR [Suspect]
     Indication: DEPRESSION
     Dosage: 37.5 MG, 1X/DAY
     Route: 048
     Dates: start: 19960101, end: 20091207
  6. EFFEXOR XR [Suspect]
     Dosage: 75 MG, TOTAL DAILY
     Route: 048
     Dates: start: 20091208, end: 20100101
  7. SPASFON [Concomitant]
     Dosage: UNK
     Dates: start: 19960101
  8. XANAX [Suspect]
     Indication: DEPRESSION
     Dosage: 1.5 MG, TOTAL DAILY
     Route: 048
     Dates: start: 19960101, end: 20090101
  9. HAVLANE [Suspect]
     Indication: INSOMNIA
     Dosage: UNKNOWN
     Route: 048
     Dates: start: 20090101
  10. TEMGESIC ^ESSEX PHARMA^ [Suspect]
     Dosage: UNK DF, UNK
     Route: 042
  11. DICETEL [Concomitant]
     Route: 048

REACTIONS (15)
  - DEPRESSION [None]
  - WEIGHT DECREASED [None]
  - SUBILEUS [None]
  - BURN OESOPHAGEAL [None]
  - DIARRHOEA [None]
  - ANURIA [None]
  - POLLAKIURIA [None]
  - ABDOMINAL DISTENSION [None]
  - FAECALOMA [None]
  - INSOMNIA [None]
  - OPEN ANGLE GLAUCOMA [None]
  - DYSURIA [None]
  - DYSPEPSIA [None]
  - PROSTATIC DISORDER [None]
  - RENAL FAILURE [None]
